FAERS Safety Report 9109586 (Version 1)
Quarter: 2013Q1

REPORT INFORMATION
  Report Type: Other
  Country: JP (occurrence: JP)
  Receive Date: 20130222
  Receipt Date: 20130222
  Transmission Date: 20140127
  Serious: Yes (Hospitalization)
  Sender: FDA-Public Use
  Company Number: JP-BRISTOL-MYERS SQUIBB COMPANY-17372533

PATIENT
  Age: 72 Year
  Sex: Male

DRUGS (2)
  1. CISPLATIN [Suspect]
     Indication: BLADDER TRANSITIONAL CELL CARCINOMA
     Dates: start: 201109
  2. GEMCITABINE [Concomitant]
     Indication: BLADDER TRANSITIONAL CELL CARCINOMA
     Dates: start: 201109

REACTIONS (1)
  - Renal salt-wasting syndrome [Unknown]
